FAERS Safety Report 20581558 (Version 1)
Quarter: 2022Q1

REPORT INFORMATION
  Report Type: Spontaneous
  Country: TR (occurrence: TR)
  Receive Date: 20220311
  Receipt Date: 20220311
  Transmission Date: 20220423
  Serious: Yes (Other)
  Sender: FDA-Public Use
  Company Number: TR-SUN PHARMACEUTICAL INDUSTRIES LTD-2022R1-329200

PATIENT
  Age: 11 Year
  Sex: Female

DRUGS (4)
  1. CARBOPLATIN [Suspect]
     Active Substance: CARBOPLATIN
     Indication: Medulloblastoma
     Dosage: 500 MILLIGRAM/SQ. METER, DAILY
     Route: 065
  2. IFOSFAMIDE [Suspect]
     Active Substance: IFOSFAMIDE
     Indication: Medulloblastoma
     Dosage: 1.8 MILLIGRAM/SQ. METER, DAILY, IV OVER AN HOUR
     Route: 042
  3. MESNA [Suspect]
     Active Substance: MESNA
     Indication: Medulloblastoma
     Dosage: UNK
     Route: 065
  4. ETOPOSIDE [Suspect]
     Active Substance: ETOPOSIDE
     Indication: Medulloblastoma
     Dosage: 100 MILLIGRAM/SQ. METER, DAILY

REACTIONS (2)
  - Drug ineffective [Unknown]
  - Somnolence [Unknown]
